FAERS Safety Report 6123829-0 (Version None)
Quarter: 2009Q1

REPORT INFORMATION
  Report Type: 
  Country: None (occurrence: None)
  Receive Date: 20090319
  Receipt Date: 20090310
  Transmission Date: 20090719
  Serious: Yes (Death, Other)
  Sender: FDA-Public Use
  Company Number: US-BAXTER-2009BH003975

PATIENT

DRUGS (2)
  1. PROCHLORPERAZINE EDISYLATE 2ML VIAL [Suspect]
     Indication: NAUSEA
     Route: 040
     Dates: start: 20090101, end: 20090101
  2. PROCHLORPERAZINE EDISYLATE 2ML VIAL [Suspect]
     Indication: VOMITING
     Route: 040
     Dates: start: 20090101, end: 20090101

REACTIONS (3)
  - CARDIO-RESPIRATORY ARREST [None]
  - DEATH [None]
  - ELECTROCARDIOGRAM QT PROLONGED [None]
